FAERS Safety Report 5612356-2 (Version None)
Quarter: 2008Q1

REPORT INFORMATION
  Report Type: 
  Country: None (occurrence: None)
  Receive Date: 20080204
  Receipt Date: 20080123
  Transmission Date: 20080703
  Serious: Yes (Death, Life-Threatening, Hospitalization)
  Sender: FDA-Public Use
  Company Number: US-SANOFI-SYNTHELABO-A03200706777

PATIENT
  Sex: Male

DRUGS (14)
  1. COLCHICINE [Suspect]
     Indication: DRUG USE FOR UNKNOWN INDICATION
     Dosage: 0.6 MG IN 1 DAY
     Route: 065
  2. PREDNISONE TAB [Suspect]
     Indication: VASCULITIS
     Route: 065
  3. CYTOXAN [Suspect]
     Indication: IMMUNOSUPPRESSION
     Route: 065
  4. REMICADE [Suspect]
     Indication: VASCULITIS
     Dosage: UNK
     Route: 042
  5. REMICADE [Suspect]
     Indication: RHEUMATOID ARTHRITIS
     Dosage: UNK
     Route: 042
  6. PLAQUENIL [Suspect]
     Indication: IMMUNOSUPPRESSION
     Route: 048
  7. RESTORIL [Concomitant]
     Indication: SLEEP DISORDER
     Dosage: 15 MG IN 1 DAY
     Route: 048
  8. THEO-DUR [Concomitant]
     Indication: CHRONIC OBSTRUCTIVE PULMONARY DISEASE
     Dosage: 100 MG 2 IN 1 DAY
     Route: 048
  9. ASPIRIN [Concomitant]
     Indication: PROPHYLAXIS
     Dosage: 81 MG IN 1 DAY
     Route: 048
  10. LASIX [Concomitant]
     Indication: DRUG USE FOR UNKNOWN INDICATION
     Dosage: 20 MG IN 1 DAY
     Route: 048
  11. POTASSIUM CHLORIDE [Concomitant]
     Indication: DRUG USE FOR UNKNOWN INDICATION
     Dosage: UNK
     Route: 048
  12. ATENOLOL [Concomitant]
     Indication: DRUG USE FOR UNKNOWN INDICATION
     Dosage: UNK
     Route: 048
  13. HYTRIN [Concomitant]
     Indication: DRUG USE FOR UNKNOWN INDICATION
     Dosage: UNK
     Route: 048
  14. FLECAINIDE ACETATE [Concomitant]
     Indication: DRUG USE FOR UNKNOWN INDICATION
     Dosage: 200 MG, 2 IN 1 DAY
     Route: 048

REACTIONS (12)
  - ANOREXIA [None]
  - APHASIA [None]
  - ASTHENIA [None]
  - CEREBROVASCULAR ACCIDENT [None]
  - CONFUSIONAL STATE [None]
  - DYSARTHRIA [None]
  - HEMIPARESIS [None]
  - MULTI-ORGAN FAILURE [None]
  - NERVOUS SYSTEM DISORDER [None]
  - PROGRESSIVE MULTIFOCAL LEUKOENCEPHALOPATHY [None]
  - RESPIRATORY DISTRESS [None]
  - URINARY INCONTINENCE [None]
